FAERS Safety Report 8227930-7 (Version None)
Quarter: 2012Q1

REPORT INFORMATION
  Report Type: 
  Country: None (occurrence: None)
  Receive Date: 20120322
  Receipt Date: 20120321
  Transmission Date: 20120608
  Serious: Yes (Life-Threatening)
  Sender: FDA-Public Use
  Company Number: PHHY2012GB024654

PATIENT
  Age: 49 Year
  Sex: Female
  Weight: 96 kg

DRUGS (1)
  1. METFORMIN HCL [Suspect]
     Dosage: 500 MG, QD
     Route: 048
     Dates: start: 20120301, end: 20120302

REACTIONS (3)
  - INDIFFERENCE [None]
  - DIZZINESS [None]
  - HEART RATE INCREASED [None]
